FAERS Safety Report 6182754-X (Version None)
Quarter: 2009Q2

REPORT INFORMATION
  Report Type: 
  Country: None (occurrence: None)
  Receive Date: 20090507
  Receipt Date: 20090428
  Transmission Date: 20091009
  Serious: Yes (Other)
  Sender: FDA-Public Use
  Company Number: US-NOVOPROD-283513

PATIENT
  Age: 10 Day
  Sex: Female
  Weight: 3.2 kg

DRUGS (16)
  1. NOVOSEVEN [Suspect]
     Indication: POST PROCEDURAL HAEMORRHAGE
     Dosage: 90 UG/KG, 4 INJECTIONS, TOTAL DOSE 270 UG
     Route: 042
     Dates: start: 20050907, end: 20050928
  2. DILAUDID [Concomitant]
     Indication: DRUG USE FOR UNKNOWN INDICATION
  3. ALBUTEROL [Concomitant]
     Indication: DRUG USE FOR UNKNOWN INDICATION
  4. MILRINONE [Concomitant]
     Indication: DRUG USE FOR UNKNOWN INDICATION
  5. PROTONIX                           /01263201/ [Concomitant]
     Indication: DRUG USE FOR UNKNOWN INDICATION
  6. LASIX [Concomitant]
     Indication: DRUG USE FOR UNKNOWN INDICATION
  7. ABLC [Concomitant]
     Indication: DRUG USE FOR UNKNOWN INDICATION
  8. VANCOMYCIN HCL [Concomitant]
     Indication: DRUG USE FOR UNKNOWN INDICATION
  9. ATIVAN [Concomitant]
     Indication: DRUG USE FOR UNKNOWN INDICATION
  10. EPINEPHRINE [Concomitant]
     Indication: DRUG USE FOR UNKNOWN INDICATION
  11. TPN [Concomitant]
     Indication: DRUG USE FOR UNKNOWN INDICATION
  12. DIURIL                             /00011801/ [Concomitant]
     Indication: DRUG USE FOR UNKNOWN INDICATION
  13. FLUCONAZOLE [Concomitant]
     Indication: DRUG USE FOR UNKNOWN INDICATION
  14. SFC [Concomitant]
     Indication: DRUG USE FOR UNKNOWN INDICATION
  15. GENTAMYCIN                         /00047101/ [Concomitant]
     Indication: DRUG USE FOR UNKNOWN INDICATION
  16. CEFTAZIDIM [Concomitant]
     Indication: DRUG USE FOR UNKNOWN INDICATION

REACTIONS (2)
  - CATHETER THROMBOSIS [None]
  - DEEP VEIN THROMBOSIS [None]
